FAERS Safety Report 6883574-0 (Version None)
Quarter: 2010Q3

REPORT INFORMATION
  Report Type: 
  Country: None (occurrence: None)
  Receive Date: 20100729
  Receipt Date: 20100723
  Transmission Date: 20110219
  Serious: Yes (Other)
  Sender: FDA-Public Use
  Company Number: DK-BRISTOL-MYERS SQUIBB COMPANY-13370689

PATIENT
  Age: 71 Year
  Sex: Male

DRUGS (8)
  1. MYCOSTATIN [Suspect]
     Indication: FUNGAL INFECTION
     Route: 048
  2. MARCUMAR [Interacting]
  3. NORVASC [Concomitant]
  4. IZATAX [Concomitant]
  5. CIPRAMIL [Concomitant]
  6. MAGNYL [Concomitant]
  7. TIMONIL RETARD [Concomitant]
  8. INSULATARD [Concomitant]

REACTIONS (3)
  - DRUG INTERACTION [None]
  - EAR HAEMORRHAGE [None]
  - INTERNATIONAL NORMALISED RATIO INCREASED [None]
